FAERS Safety Report 7861577-7 (Version None)
Quarter: 2011Q4

REPORT INFORMATION
  Report Type: 
  Country: None (occurrence: None)
  Receive Date: 20111027
  Receipt Date: 20111017
  Transmission Date: 20120403
  Serious: Yes (Death, Hospitalization)
  Sender: FDA-Public Use
  Company Number: US-BAXTER-2011BH029754

PATIENT
  Sex: Female

DRUGS (2)
  1. GAMMAGARD LIQUID [Suspect]
     Indication: HYPOGAMMAGLOBULINAEMIA
     Dates: start: 20100708, end: 20100708
  2. GAMMAGARD LIQUID [Suspect]
     Dates: start: 20050101

REACTIONS (3)
  - MULTIPLE MYELOMA [None]
  - PATHOLOGICAL FRACTURE [None]
  - DISEASE PROGRESSION [None]
